FAERS Safety Report 8126198-X (Version None)
Quarter: 2012Q1

REPORT INFORMATION
  Report Type: 
  Country: None (occurrence: None)
  Receive Date: 20120209
  Receipt Date: 20120206
  Transmission Date: 20120608
  Serious: Yes (Hospitalization)
  Sender: FDA-Public Use
  Company Number: PHHY2011IT71639

PATIENT
  Sex: Female

DRUGS (4)
  1. TYROSINE [Concomitant]
     Indication: HYPOTHYROIDISM
     Dosage: UNK UKN, UNK
  2. INSULIN [Concomitant]
     Indication: DIABETES MELLITUS
     Dosage: UNK UKN, UNK
  3. EXJADE [Suspect]
     Indication: THALASSAEMIA BETA
     Dosage: 30 MG/KG, DAILY
     Route: 048
     Dates: start: 20110303, end: 20110517
  4. MAGNESIUM HYDROXIDE TAB [Concomitant]
     Indication: HYPERCHLORHYDRIA
     Dosage: 400 MG, BID
     Route: 048

REACTIONS (1)
  - MELAENA [None]
